FAERS Safety Report 9566516 (Version 2)
Quarter: 2013Q4

REPORT INFORMATION
  Report Type: Spontaneous
  Country: US (occurrence: US)
  Receive Date: 20130930
  Receipt Date: 20131118
  Transmission Date: 20140711
  Serious: Yes (Other)
  Sender: FDA-Public Use
  Company Number: US-PFIZER INC-2013275845

PATIENT
  Age: 52 Year
  Sex: Female
  Weight: 89 kg

DRUGS (18)
  1. EFFEXOR XR [Suspect]
     Indication: DEPRESSION
     Dosage: 150 MG, DAILY
  2. EFFEXOR XR [Suspect]
     Indication: SCHIZOAFFECTIVE DISORDER
  3. VENLAFAXINE HCL [Suspect]
     Indication: DEPRESSION
     Dosage: UNK
  4. VENLAFAXINE HCL [Suspect]
     Indication: SCHIZOAFFECTIVE DISORDER
  5. AMLODIPINE BESILATE [Suspect]
     Indication: HYPERTENSION
     Dosage: 10 MG, UNK
  6. LOSARTAN POTASSIUM [Suspect]
     Indication: HYPERTENSION
     Dosage: 25 MG, UNK
  7. METFORMIN HCL [Suspect]
     Indication: DIABETES MELLITUS
     Dosage: 1000 MG, UNK
  8. CLONIDINE [Suspect]
     Indication: HYPERTENSION
     Dosage: 0.1 MG, UNK
  9. LASIX [Concomitant]
     Indication: SWELLING
     Dosage: 20 MG, UNK
  10. OMEPRAZOLE [Concomitant]
     Indication: GASTRIC DISORDER
     Dosage: 20 MG, UNK
  11. FENOFIBRATE [Concomitant]
     Indication: BLOOD CHOLESTEROL INCREASED
     Dosage: 160 MG, UNK
  12. METOCLOPRAMIDE [Concomitant]
     Dosage: 10 MG, 4X/DAY
  13. PROMETHAZINE [Concomitant]
     Indication: NAUSEA
     Dosage: 25 MG, UNK
  14. RANITIDINE HYDROCHLORIDE [Concomitant]
     Indication: GASTRIC DISORDER
     Dosage: UNK
  15. RANITIDINE HYDROCHLORIDE [Concomitant]
     Indication: DYSPEPSIA
  16. KLOR-CON [Concomitant]
     Dosage: UNK
  17. LATUDA [Concomitant]
     Indication: SCHIZOAFFECTIVE DISORDER
     Dosage: 80 MG, UNK
  18. BUSPAN [Concomitant]
     Dosage: UNK

REACTIONS (6)
  - Blood glucose increased [Unknown]
  - Anxiety [Recovered/Resolved]
  - Palpitations [Recovered/Resolved]
  - Headache [Unknown]
  - Drug ineffective [Unknown]
  - Off label use [Unknown]
